FAERS Safety Report 6816210-X (Version None)
Quarter: 2010Q3

REPORT INFORMATION
  Report Type: 
  Country: None (occurrence: None)
  Receive Date: 20100705
  Receipt Date: 20100628
  Transmission Date: 20110219
  Serious: Yes (Hospitalization)
  Sender: FDA-Public Use
  Company Number: FR-BRISTOL-MYERS SQUIBB COMPANY-15171713

PATIENT
  Age: 87 Year
  Sex: Male

DRUGS (8)
  1. IRBESARTAN [Suspect]
     Indication: HYPERTENSION
     Route: 048
     Dates: end: 20090924
  2. LANTUS [Suspect]
     Indication: TYPE 2 DIABETES MELLITUS
     Dosage: DECREASED TO 1.25MG/DAY.
  3. ACEBUTOLOL [Suspect]
     Indication: HYPERTENSION
     Route: 048
  4. NAFTIDROFURYL [Suspect]
     Route: 048
  5. MEMANTINE HCL [Suspect]
  6. LANSOPRAZOLE [Concomitant]
     Route: 048
  7. PLAVIX [Concomitant]
     Indication: ARTERITIS
     Route: 048
  8. CORVASAL [Concomitant]
     Indication: CARDIAC FAILURE
     Route: 048

REACTIONS (4)
  - BRADYCARDIA [None]
  - FALL [None]
  - GENERAL PHYSICAL HEALTH DETERIORATION [None]
  - ORTHOSTATIC HYPOTENSION [None]
